FAERS Safety Report 4876314-8 (Version None)
Quarter: 2006Q1

REPORT INFORMATION
  Report Type: 
  Country: None (occurrence: None)
  Receive Date: 20060110
  Receipt Date: 20060104
  Transmission Date: 20060701
  Serious: Yes (Other)
  Sender: FDA-Public Use
  Company Number: GB-BOEHRINGER INGELHEIM PHARMACEUTICALS, INC.-2006-BP-00153YA

PATIENT
  Age: 60 Year
  Sex: Male

DRUGS (2)
  1. FLOMAX [Suspect]
     Indication: HYPERTENSION
     Route: 048
     Dates: start: 20051122, end: 20051126
  2. SERETIDE [Concomitant]
     Route: 055

REACTIONS (3)
  - CONFUSIONAL STATE [None]
  - DISORIENTATION [None]
  - ROAD TRAFFIC ACCIDENT [None]
